FAERS Safety Report 14281827 (Version 4)
Quarter: 2021Q3

REPORT INFORMATION
  Report Type: Spontaneous
  Country: US (occurrence: US)
  Receive Date: 20171213
  Receipt Date: 20210705
  Transmission Date: 20211014
  Serious: Yes (Other)
  Sender: FDA-Public Use
  Company Number: US-PFIZER INC-2017531979

PATIENT
  Age: 73 Year
  Sex: Female
  Weight: 69 kg

DRUGS (1)
  1. XELJANZ XR [Suspect]
     Active Substance: TOFACITINIB CITRATE
     Indication: RHEUMATOID ARTHRITIS
     Dosage: 11 MG, 1X/DAY
     Route: 048
     Dates: start: 201611

REACTIONS (2)
  - Illness [Unknown]
  - Cataract [Recovering/Resolving]

NARRATIVE: CASE EVENT DATE: 20171205
